FAERS Safety Report 5925928-2 (Version None)
Quarter: 2008Q3

REPORT INFORMATION
  Report Type: 
  Country: None (occurrence: None)
  Receive Date: 20080923
  Receipt Date: 20070801
  Transmission Date: 20090109
  Serious: Yes (Life-Threatening, Other)
  Sender: FDA-Public Use
  Company Number: WAES 0708USA00576

PATIENT
  Age: 58 Year
  Sex: Female

DRUGS (5)
  1. VYTORIN [Suspect]
     Indication: BLOOD CHOLESTEROL INCREASED
     Dosage: 10-10 MG/DAILY/PO
     Route: 048
     Dates: start: 20070501
  2. AVALIDE [Concomitant]
  3. NEXIUM [Concomitant]
  4. ZIAC [Concomitant]
  5. ZYRTEC [Concomitant]

REACTIONS (1)
  - CHOLELITHIASIS [None]
